FAERS Safety Report 24205997 (Version 4)
Quarter: 2024Q3

REPORT INFORMATION
  Report Type: Report from Study
  Country: CA (occurrence: None)
  Receive Date: 20240813
  Receipt Date: 20240827
  Transmission Date: 20241017
  Serious: Yes (Hospitalization)
  Sender: ASTRAZENECA
  Company Number: 2024A182588

PATIENT
  Age: 24150 Day
  Sex: Female

DRUGS (5)
  1. TEZSPIRE [Suspect]
     Active Substance: TEZEPELUMAB-EKKO
     Indication: Asthma
     Dosage: 210.0MG UNKNOWN
     Route: 058
     Dates: start: 20240625
  2. MUCOMYST [Suspect]
     Active Substance: ACETYLCYSTEINE
  3. PREDNISONE [Suspect]
     Active Substance: PREDNISONE
  4. VENTOLIN [Concomitant]
     Active Substance: ALBUTEROL SULFATE
     Dosage: 100.0UG AS REQUIRED
  5. SYMBICORT [Concomitant]
     Active Substance: BUDESONIDE\FORMOTEROL FUMARATE DIHYDRATE
     Dosage: 200/6 MCG 2INH BID + PRN
     Dates: start: 2016

REACTIONS (8)
  - Bacterial infection [Unknown]
  - Oral candidiasis [Unknown]
  - Rib fracture [Unknown]
  - Inflammation [Unknown]
  - Dyspnoea [Recovering/Resolving]
  - Viral infection [Unknown]
  - Cough [Unknown]
  - Drug ineffective [Unknown]

NARRATIVE: CASE EVENT DATE: 20240808
